FAERS Safety Report 12668340 (Version 1)
Quarter: 2016Q3

REPORT INFORMATION
  Report Type: Spontaneous
  Country: CH (occurrence: CH)
  Receive Date: 20160819
  Receipt Date: 20160819
  Transmission Date: 20161109
  Serious: Yes (Death, Other)
  Sender: FDA-Public Use
  Company Number: PHHY2016CH112906

PATIENT

DRUGS (3)
  1. ENOXAPARIN [Suspect]
     Active Substance: ENOXAPARIN
     Indication: FOETAL EXPOSURE DURING PREGNANCY
     Route: 064
  2. ACETYLSALICYLIC ACID [Suspect]
     Active Substance: ASPIRIN
     Indication: FOETAL EXPOSURE DURING PREGNANCY
     Route: 064
  3. PREGABALIN. [Suspect]
     Active Substance: PREGABALIN
     Indication: FOETAL EXPOSURE DURING PREGNANCY
     Route: 064

REACTIONS (9)
  - Shock [Unknown]
  - Hypotonia neonatal [Unknown]
  - Renal failure neonatal [Unknown]
  - Foetal growth restriction [Unknown]
  - Late metabolic acidosis of newborn [Unknown]
  - Neonatal respiratory distress syndrome [Unknown]
  - Hepatocellular injury [Unknown]
  - Death [Fatal]
  - Foetal exposure during pregnancy [Unknown]
